FAERS Safety Report 6544264-7 (Version None)
Quarter: 2010Q1

REPORT INFORMATION
  Report Type: 
  Country: None (occurrence: None)
  Receive Date: 20100115
  Receipt Date: 20100104
  Transmission Date: 20100710
  Serious: No
  Sender: FDA-Public Use
  Company Number: 2010AP000029

PATIENT
  Sex: 0

DRUGS (1)
  1. LAMOTRIGINE [Suspect]
     Dosage: 100 MG, TRPL
     Route: 064
     Dates: start: 20040101, end: 20070301

REACTIONS (5)
  - ANENCEPHALY [None]
  - CONGENITAL ECTOPIC BLADDER [None]
  - EXOMPHALOS [None]
  - LIMB MALFORMATION [None]
  - MATERNAL DRUGS AFFECTING FOETUS [None]
